FAERS Safety Report 13082184 (Version 3)
Quarter: 2017Q4

REPORT INFORMATION
  Report Type: Spontaneous
  Country: DE (occurrence: DE)
  Receive Date: 20170103
  Receipt Date: 20171204
  Transmission Date: 20180320
  Serious: Yes (Death)
  Sender: FDA-Public Use
  Company Number: DE-TEVA-723615GER

PATIENT
  Age: 75 Year
  Sex: Male

DRUGS (8)
  1. GLIANIMON [Concomitant]
     Active Substance: BENPERIDOL
     Dates: start: 201603, end: 20160414
  2. PIPAMPERONE [Concomitant]
     Active Substance: PIPAMPERONE
     Dosage: 20-20-40
  3. QUETIAPIN [Concomitant]
     Active Substance: QUETIAPINE
  4. HALDOL [Suspect]
     Active Substance: HALOPERIDOL
     Dates: end: 20160723
  5. LORAZEPAM. [Concomitant]
     Active Substance: LORAZEPAM
     Dates: start: 201603, end: 20160414
  6. OLANZAPIN [Suspect]
     Active Substance: OLANZAPINE
     Dosage: 20 MILLIGRAM DAILY;
     Dates: start: 20160723, end: 20160915
  7. OLANZAPIN [Suspect]
     Active Substance: OLANZAPINE
     Dosage: 10 MILLIGRAM DAILY;
     Dates: start: 201604, end: 20160528
  8. RISPERIDON [Concomitant]
     Active Substance: RISPERIDONE
     Dosage: 20-20-40

REACTIONS (14)
  - Neuroleptic malignant syndrome [Fatal]
  - Body temperature increased [Fatal]
  - Cerebellar syndrome [Fatal]
  - Dysarthria [Fatal]
  - General physical health deterioration [Fatal]
  - Muscle rigidity [Fatal]
  - Bradyphrenia [Fatal]
  - Eye movement disorder [Fatal]
  - Sepsis [Fatal]
  - Dysphagia [Fatal]
  - Cough [Fatal]
  - Gait disturbance [Fatal]
  - Pneumonia aspiration [Fatal]
  - Dry mouth [Fatal]

NARRATIVE: CASE EVENT DATE: 20160414
